FAERS Safety Report 16347714 (Version 2)
Quarter: 2019Q4

REPORT INFORMATION
  Report Type: Spontaneous
  Country: US (occurrence: US)
  Receive Date: 20190523
  Receipt Date: 20191007
  Transmission Date: 20200122
  Serious: Yes (Other)
  Sender: FDA-Public Use
  Company Number: US-MALLINCKRODT-T201903889

PATIENT
  Age: 8 Month
  Sex: Male

DRUGS (4)
  1. H.P. ACTHAR [Suspect]
     Active Substance: CORTICOTROPIN
     Dosage: WEANED OVER TWO WEEKS
     Route: 065
  2. H.P. ACTHAR [Suspect]
     Active Substance: CORTICOTROPIN
     Indication: INFANTILE SPASMS
     Dosage: 150 U/ M E2/DAY
     Route: 065
  3. VIGABATRIN. [Suspect]
     Active Substance: VIGABATRIN
     Indication: INFANTILE SPASMS
     Dosage: UNK
     Route: 065
  4. VIGABATRIN. [Suspect]
     Active Substance: VIGABATRIN
     Dosage: TITRATED TO 150 MG/KG/DAY, UNK
     Route: 065

REACTIONS (16)
  - Poor feeding infant [Unknown]
  - Epidural lipomatosis [Unknown]
  - Chorea [Unknown]
  - Somnolence [Unknown]
  - Tardive dyskinesia [Recovering/Resolving]
  - Retinal pigmentation [Unknown]
  - Weight increased [Unknown]
  - Haematochezia [Unknown]
  - Myoclonus [Unknown]
  - Posterior cortical atrophy [Unknown]
  - Encephalopathy [Recovering/Resolving]
  - Cushingoid [Unknown]
  - Drug ineffective [Unknown]
  - Toxicity to various agents [Unknown]
  - Hypertension [Unknown]
  - Hypokinesia [Unknown]
